FAERS Safety Report 7986897-7 (Version None)
Quarter: 2011Q4

REPORT INFORMATION
  Report Type: 
  Country: None (occurrence: None)
  Receive Date: 20111216
  Receipt Date: 20110304
  Transmission Date: 20120403
  Serious: No
  Sender: FDA-Public Use
  Company Number: US-BRISTOL-MYERS SQUIBB COMPANY-15588791

PATIENT
  Age: 69 Year
  Sex: Male
  Weight: 95 kg

DRUGS (3)
  1. ABILIFY [Suspect]
  2. REMERON [Concomitant]
  3. EFFEXOR [Concomitant]

REACTIONS (2)
  - FLUID RETENTION [None]
  - ABDOMINAL DISTENSION [None]
